FAERS Safety Report 9154464 (Version 1)
Quarter: 2013Q1

REPORT INFORMATION
  Report Type: Spontaneous
  Country: GB (occurrence: None)
  Receive Date: 20130207
  Receipt Date: 20130207
  Transmission Date: 20140127
  Serious: Yes (Other)
  Sender: FDA-Public Use
  Company Number: BTG00055

PATIENT
  Sex: 0

DRUGS (2)
  1. VORAXAZE [Suspect]
     Indication: DRUG TOXICITY PROPHYLAXIS
     Dosage: 50 UNITS/KG OVER 15 MIN
  2. METHOTREXATE (METHOTREXATE) [Suspect]
     Indication: DIFFUSE LARGE B-CELL LYMPHOMA
     Dosage: 3 G/M2 OVER 4 HOURS PER CYCLE

REACTIONS (3)
  - Urinary retention [None]
  - Renal pain [None]
  - Infusion site reaction [None]
